FAERS Safety Report 23999777 (Version 2)
Quarter: 2024Q3

REPORT INFORMATION
  Report Type: Spontaneous
  Country: US (occurrence: US)
  Receive Date: 20240621
  Receipt Date: 20240705
  Transmission Date: 20241017
  Serious: No
  Sender: EISAI
  Company Number: US-Eisai-EC-2024-166177

PATIENT
  Age: 72 Year
  Sex: Female

DRUGS (1)
  1. LEQEMBI [Suspect]
     Active Substance: LECANEMAB-IRMB
     Indication: Dementia Alzheimer^s type
     Dosage: UNKNOWN DOSE AND FREQUENCY
     Route: 042
     Dates: start: 20240520

REACTIONS (4)
  - Chills [Unknown]
  - Vomiting [Recovered/Resolved]
  - Headache [Recovered/Resolved]
  - Sinus headache [Unknown]

NARRATIVE: CASE EVENT DATE: 20240520
